FAERS Safety Report 10164950 (Version 1)
Quarter: 2014Q2

REPORT INFORMATION
  Report Type: Spontaneous
  Country: US (occurrence: US)
  Receive Date: 20140510
  Receipt Date: 20140510
  Transmission Date: 20141212
  Serious: No
  Sender: FDA-Public Use
  Company Number: US-BRISTOL-MYERS SQUIBB COMPANY-19638378

PATIENT
  Age: 52 Year
  Sex: Female
  Weight: 105.67 kg

DRUGS (6)
  1. BYDUREON [Suspect]
     Indication: INCREASED APPETITE
     Dates: start: 20131012
  2. BYDUREON [Suspect]
     Indication: TYPE 2 DIABETES MELLITUS
     Dates: start: 20131012
  3. BYDUREON [Suspect]
     Indication: WEIGHT CONTROL
     Dates: start: 20131012
  4. METFORMIN HCL [Suspect]
     Route: 048
  5. LANTUS [Suspect]
     Indication: TYPE 2 DIABETES MELLITUS
     Dosage: 1DF: 5-8 UNITS AT NIGHT TIME
     Route: 058
     Dates: start: 201310
  6. LOSARTAN [Concomitant]
     Route: 048

REACTIONS (2)
  - Blood glucose increased [Not Recovered/Not Resolved]
  - Increased appetite [Not Recovered/Not Resolved]
